FAERS Safety Report 11008517 (Version 1)
Quarter: 2015Q2

REPORT INFORMATION
  Report Type: Spontaneous
  Country: US (occurrence: US)
  Receive Date: 20150410
  Receipt Date: 20150410
  Transmission Date: 20150821
  Serious: No
  Sender: FDA-Public Use
  Company Number: US-TEVA-537509USA

PATIENT

DRUGS (1)
  1. LEVALBUTEROL [Suspect]
     Active Substance: LEVALBUTEROL

REACTIONS (3)
  - Product substitution issue [Unknown]
  - Product quality issue [Unknown]
  - Cough [Unknown]
